FAERS Safety Report 7199545-3 (Version None)
Quarter: 2010Q4

REPORT INFORMATION
  Report Type: 
  Country: None (occurrence: None)
  Receive Date: 20101228
  Receipt Date: 20101221
  Transmission Date: 20110411
  Serious: Yes (Other)
  Sender: FDA-Public Use
  Company Number: PHHY2010US87640

PATIENT
  Sex: Female

DRUGS (3)
  1. TOBI [Suspect]
     Indication: CYSTIC FIBROSIS
     Dosage: 300 MG, BID
     Dates: start: 20100901
  2. PULMOZYME [Concomitant]
     Dosage: UNK
  3. PANCREATIC ENZYMES [Concomitant]
     Dosage: UNK

REACTIONS (1)
  - STAPHYLOCOCCAL INFECTION [None]
